FAERS Safety Report 5979955-X (Version None)
Quarter: 2008Q4

REPORT INFORMATION
  Report Type: 
  Country: None (occurrence: None)
  Receive Date: 20081205
  Receipt Date: 20081126
  Transmission Date: 20090506
  Serious: No
  Sender: FDA-Public Use
  Company Number: FR-JNJFOC-20081106381

PATIENT
  Age: 37 Year
  Sex: Male

DRUGS (3)
  1. RISPERDAL CONSTA [Suspect]
     Indication: DRUG USE FOR UNKNOWN INDICATION
     Route: 030
  2. TERCIAN [Concomitant]
     Route: 065
  3. PRAZEPAM [Concomitant]
     Route: 065

REACTIONS (1)
  - LEUKOPENIA [None]
